FAERS Safety Report 20667702 (Version 1)
Quarter: 2022Q2

REPORT INFORMATION
  Report Type: Report from Study
  Country: CA (occurrence: CA)
  Receive Date: 20220404
  Receipt Date: 20220404
  Transmission Date: 20220720
  Serious: Yes (Other)
  Sender: FDA-Public Use
  Company Number: CA-TEVA-2022-CA-2023133

PATIENT
  Age: 56 Year
  Sex: Female
  Weight: 135 kg

DRUGS (22)
  1. CINQAIR [Suspect]
     Active Substance: RESLIZUMAB
     Indication: Asthma
     Dosage: 400.00, LAST INFUSION DATE: 03-NOV-2021.
     Route: 042
     Dates: start: 20180828
  2. PREDNISONE [Concomitant]
     Active Substance: PREDNISONE
     Indication: Product used for unknown indication
     Route: 065
  3. THEOPHYLLINE [Concomitant]
     Active Substance: THEOPHYLLINE
     Indication: Product used for unknown indication
     Route: 065
  4. NASACORT [Concomitant]
     Active Substance: TRIAMCINOLONE ACETONIDE
     Indication: Product used for unknown indication
     Route: 065
  5. FLOMAX [Concomitant]
     Active Substance: TAMSULOSIN HYDROCHLORIDE
     Indication: Product used for unknown indication
     Route: 065
  6. PULMICORT TURBUHALER [Concomitant]
     Active Substance: BUDESONIDE
  7. SINGULAIR [Concomitant]
     Active Substance: MONTELUKAST SODIUM
  8. SYMBICORT [Concomitant]
     Active Substance: BUDESONIDE\FORMOTEROL FUMARATE DIHYDRATE
  9. VENTOLIN [Concomitant]
     Active Substance: ALBUTEROL SULFATE
  10. BECLOMETHASONE [Concomitant]
     Active Substance: BECLOMETHASONE
  11. Aeirius Brio [Concomitant]
  12. SPIRIVA [Concomitant]
     Active Substance: TIOTROPIUM BROMIDE MONOHYDRATE
  13. ACLIDINIUM BROMIDE [Concomitant]
     Active Substance: ACLIDINIUM BROMIDE
  14. DYMISTA [Concomitant]
     Active Substance: AZELASTINE HYDROCHLORIDE\FLUTICASONE PROPIONATE
  15. AZITHROMYCIN [Concomitant]
     Active Substance: AZITHROMYCIN
  16. CANDESARTAN [Concomitant]
     Active Substance: CANDESARTAN
  17. ESOMEPRAZOLE [Concomitant]
     Active Substance: ESOMEPRAZOLE
  18. Mylan-Nifedipine [Concomitant]
  19. ZINC [Concomitant]
     Active Substance: ZINC
  20. MAGNESIUM [Concomitant]
     Active Substance: MAGNESIUM
  21. CALCIUM PANTOTHENATE\CYANOCOBALAMIN\NIACINAMIDE\PYRIDOXINE HYDROCHLORI [Concomitant]
     Active Substance: CALCIUM PANTOTHENATE\CYANOCOBALAMIN\NIACINAMIDE\PYRIDOXINE HYDROCHLORIDE\RIBOFLAVIN\THIAMINE MONONIT
  22. VITAMINS [Concomitant]
     Active Substance: VITAMINS

REACTIONS (4)
  - Nephrolithiasis [Unknown]
  - Cholelithiasis [Unknown]
  - Product dose omission issue [Unknown]
  - Incorrect dose administered [Unknown]

NARRATIVE: CASE EVENT DATE: 20220101
